FAERS Safety Report 9826219 (Version 1)
Quarter: 2014Q1

REPORT INFORMATION
  Report Type: Spontaneous
  Country: FR (occurrence: FR)
  Receive Date: 20140117
  Receipt Date: 20140117
  Transmission Date: 20141002
  Serious: Yes (Hospitalization, Other)
  Sender: FDA-Public Use
  Company Number: FR-009507513-1401FRA003370

PATIENT
  Age: 87 Year
  Sex: Male

DRUGS (5)
  1. NORSET [Suspect]
     Dosage: 1 DF, QD
     Route: 048
     Dates: start: 20131007, end: 20131026
  2. VALSARTAN [Concomitant]
  3. KEPPRA [Concomitant]
     Indication: EPILEPSY
  4. MODOPAR [Concomitant]
  5. INEXIUM [Concomitant]

REACTIONS (3)
  - Hemiparesis [Recovered/Resolved]
  - Simple partial seizures [Recovered/Resolved]
  - Disease progression [Recovered/Resolved]
